FAERS Safety Report 9016439 (Version 3)
Quarter: 2013Q1

REPORT INFORMATION
  Report Type: Spontaneous
  Country: JP (occurrence: JP)
  Receive Date: 20130116
  Receipt Date: 20130219
  Transmission Date: 20140127
  Serious: Yes (Hospitalization)
  Sender: FDA-Public Use
  Company Number: JP-GLAXOSMITHKLINE-B0858654A

PATIENT
  Age: 67 Year
  Sex: Male

DRUGS (5)
  1. VALTREX [Suspect]
     Indication: HERPES ZOSTER
     Dosage: 1000MG THREE TIMES PER DAY
     Route: 048
     Dates: start: 20121218, end: 20121221
  2. ADETPHOS [Concomitant]
     Route: 065
  3. LIVALO [Concomitant]
     Route: 048
  4. LOXONIN [Concomitant]
     Route: 065
  5. MUCOSTA [Concomitant]
     Route: 065

REACTIONS (3)
  - Renal failure acute [Recovered/Resolved]
  - Altered state of consciousness [Unknown]
  - Urine output decreased [Unknown]
